FAERS Safety Report 8618678-5 (Version None)
Quarter: 2012Q3

REPORT INFORMATION
  Report Type: 
  Country: None (occurrence: None)
  Receive Date: 20120824
  Receipt Date: 20120815
  Transmission Date: 20120928
  Serious: Yes (Hospitalization)
  Sender: FDA-Public Use
  Company Number: DE-009507513-2012SP024377

PATIENT

DRUGS (31)
  1. TAMSULOSIN HYDROCHLORIDE [Concomitant]
     Indication: PRE-EXISTING DISEASE
     Dosage: FREQUNCY: EVERY NIGHT
     Route: 048
     Dates: start: 20100415
  2. CRIXOFOL [Concomitant]
     Indication: INDUCTION OF ANAESTHESIA
     Dosage: 200 MG, PRN
     Route: 040
     Dates: start: 20120419, end: 20120419
  3. ROPIVACAINE HYDROCHLORIDE [Concomitant]
     Indication: INDUCTION OF ANAESTHESIA
     Dosage: DOSE: 12000 MCG/HOUR
     Route: 053
     Dates: start: 20120419
  4. HYDROCHLOROTHIAZIDE [Concomitant]
     Indication: PRE-EXISTING DISEASE
     Dosage: 12.5 MG, QAM
     Route: 048
     Dates: start: 20110517
  5. REMIFENTANIL HYDROCHLORIDE [Concomitant]
     Indication: INDUCTION OF ANAESTHESIA
     Dosage: 1185 ?G, PRN
     Route: 042
     Dates: start: 20120419, end: 20120419
  6. METOPROLOL TARTRATE [Concomitant]
     Indication: PRE-EXISTING DISEASE
     Dosage: 50 MG, QAM
     Route: 048
     Dates: start: 20110526
  7. ASPIRIN [Concomitant]
     Indication: THROMBOSIS PROPHYLAXIS
     Dosage: FREQUENCY: EVERY AFTERNOON
     Dates: start: 20081015, end: 20120411
  8. PARECOXIB SODIUM [Concomitant]
     Indication: PRODUCT USED FOR UNKNOWN INDICATION
     Dosage: INDICATION: ADVERSE EVENT
     Route: 042
     Dates: start: 20120419, end: 20120419
  9. CEFUROXIME [Concomitant]
     Indication: INFECTION PROPHYLAXIS
     Dosage: 1.5 G, TID
     Route: 041
     Dates: start: 20120430, end: 20120502
  10. DIPYRONE INJ [Concomitant]
     Indication: PRODUCT USED FOR UNKNOWN INDICATION
     Dosage: INDICATION: ADVERSE EVENT
     Route: 048
     Dates: start: 20120422
  11. PIRITRAMIDE [Concomitant]
     Indication: PRODUCT USED FOR UNKNOWN INDICATION
     Dosage: INDICATION: ADVERSE EVENT
     Route: 040
     Dates: start: 20120419, end: 20120419
  12. DIPYRONE INJ [Concomitant]
     Dosage: INDICATION: ADVERSE EVENT
     Route: 041
     Dates: start: 20120419
  13. CEFUROXIME [Concomitant]
     Dosage: 1.5 G, TID
     Route: 041
     Dates: start: 20120419, end: 20120423
  14. CATAPRES [Concomitant]
     Indication: PRODUCT USED FOR UNKNOWN INDICATION
     Dosage: INDICATION: ADVERSE EVENT
     Route: 040
     Dates: start: 20120419, end: 20120419
  15. SUGAMMADEX SODIUM [Suspect]
     Indication: NEUROMUSCULAR BLOCKADE REVERSAL
     Dosage: UNK
     Route: 042
     Dates: start: 20120419, end: 20120419
  16. METOCLOPRAMIDE [Concomitant]
     Indication: PRODUCT USED FOR UNKNOWN INDICATION
     Dosage: INDICATION: ADVERSE EVENT
     Route: 048
     Dates: start: 20120423, end: 20120423
  17. ISOFORINE [Concomitant]
     Indication: INDUCTION OF ANAESTHESIA
     Dosage: 0.6 %, PRN
     Route: 055
     Dates: start: 20120419, end: 20120419
  18. RIFAMPIN [Concomitant]
     Indication: INFECTION PROPHYLAXIS
     Dosage: 600 MG, QD
     Route: 041
     Dates: start: 20120430, end: 20120502
  19. BEBETINA [Concomitant]
     Indication: INDUCTION OF ANAESTHESIA
     Dosage: 1 G, ONCE
     Route: 041
     Dates: start: 20120419, end: 20120419
  20. TRIAMTERENE [Concomitant]
     Indication: PRE-EXISTING DISEASE
     Dosage: 25 MG, QAM
     Route: 048
     Dates: start: 20110517
  21. BEBETINA [Concomitant]
     Indication: PRODUCT USED FOR UNKNOWN INDICATION
     Dosage: INDICATION: ADVERSE EVENT
     Route: 041
     Dates: start: 20120419
  22. IBUPROFEN [Concomitant]
     Indication: ANKYLOSING SPONDYLITIS
     Dosage: 600 MG, QAM
     Route: 048
     Dates: start: 20110526, end: 20120418
  23. CRIXOFOL [Concomitant]
     Indication: PRODUCT USED FOR UNKNOWN INDICATION
     Dosage: INDICATION: ADVERSE EVENT
     Route: 040
     Dates: start: 20120430, end: 20120430
  24. FUROSEMIDE [Concomitant]
     Indication: PRE-EXISTING DISEASE
     Dosage: 20 MG, BID
     Route: 048
     Dates: start: 20090805
  25. ENOXAPARIN SODIUM [Concomitant]
     Indication: THROMBOSIS PROPHYLAXIS
     Dosage: FREQUENCY: EVERY NIGHT
     Route: 058
     Dates: start: 20120418
  26. CORRECTOL [Concomitant]
     Indication: PRODUCT USED FOR UNKNOWN INDICATION
     Dosage: INDICATION: ADVERSE EVENT
     Route: 054
     Dates: start: 20120423
  27. ROPIVACAINE HYDROCHLORIDE [Concomitant]
     Dosage: 100 MG, ONCE
     Route: 053
     Dates: start: 20120419, end: 20120419
  28. CLINDAMYCIN [Concomitant]
     Indication: INFECTION PROPHYLAXIS
     Dosage: 600 MG, BID
     Route: 041
     Dates: start: 20120427, end: 20120503
  29. ALLOPURINOL [Concomitant]
     Indication: PRE-EXISTING DISEASE
     Dosage: FREQUENCY: EVERY NIGHT
     Route: 048
     Dates: start: 20110526
  30. PANTOPRAZOLE [Concomitant]
     Indication: PROPHYLAXIS AGAINST GASTROINTESTINAL ULCER
     Dosage: 20 MG, QAM
     Route: 048
     Dates: start: 20110526, end: 20120418
  31. REKAWAN [Concomitant]
     Indication: PRODUCT USED FOR UNKNOWN INDICATION
     Dosage: FREQUENCY: 6 TIMES PER DAY; INDICATION: ADVERSE EVENT
     Route: 048
     Dates: start: 20120427

REACTIONS (1)
  - HAEMARTHROSIS [None]
